FAERS Safety Report 25018240 (Version 3)
Quarter: 2025Q3

REPORT INFORMATION
  Report Type: Report from Study
  Country: CA (occurrence: CA)
  Receive Date: 20250227
  Receipt Date: 20250704
  Transmission Date: 20251020
  Serious: Yes (Other)
  Sender: NOVARTIS
  Company Number: CA-002147023-NVSC2025CA032714

PATIENT
  Age: 41 Year
  Sex: Female

DRUGS (2)
  1. KESIMPTA [Suspect]
     Active Substance: OFATUMUMAB
     Indication: Relapsing-remitting multiple sclerosis
     Dosage: 20 MG, QMO
     Route: 058
     Dates: start: 20241119
  2. AMPYRA [Suspect]
     Active Substance: DALFAMPRIDINE
     Indication: Product used for unknown indication
     Route: 065

REACTIONS (19)
  - Neutropenia [Unknown]
  - Blindness [Unknown]
  - Dysmetria [Not Recovered/Not Resolved]
  - Upper respiratory tract infection [Unknown]
  - Sensory loss [Unknown]
  - Urinary tract infection [Unknown]
  - Viral infection [Unknown]
  - Muscle spasticity [Unknown]
  - Dysarthria [Not Recovered/Not Resolved]
  - Mobility decreased [Not Recovered/Not Resolved]
  - Asthenia [Unknown]
  - Anisocoria [Unknown]
  - Foot deformity [Unknown]
  - Peripheral swelling [Unknown]
  - Skin discolouration [Unknown]
  - Extensor plantar response [Unknown]
  - Hypokinesia [Unknown]
  - Muscular weakness [Unknown]
  - Micturition urgency [Unknown]
